FAERS Safety Report 15715878 (Version 2)
Quarter: 2019Q1

REPORT INFORMATION
  Report Type: Report from Study
  Country: None (occurrence: US)
  Receive Date: 20181212
  Receipt Date: 20190318
  Transmission Date: 20190417
  Serious: Yes (Other)
  Sender: FDA-Public Use
  Company Number: US-ABBVIE-18K-163-2581775-00

PATIENT
  Sex: Female

DRUGS (1)
  1. HUMIRA [Suspect]
     Active Substance: ADALIMUMAB
     Indication: PSORIATIC ARTHROPATHY
     Route: 058

REACTIONS (6)
  - Joint stiffness [Not Recovered/Not Resolved]
  - Systemic lupus erythematosus [Recovering/Resolving]
  - Flushing [Recovering/Resolving]
  - Arthralgia [Not Recovered/Not Resolved]
  - Diabetes mellitus [Recovering/Resolving]
  - Erythema [Recovering/Resolving]
